FAERS Safety Report 16940813 (Version 1)
Quarter: 2019Q4

REPORT INFORMATION
  Report Type: Spontaneous
  Country: CN (occurrence: CN)
  Receive Date: 20191021
  Receipt Date: 20191021
  Transmission Date: 20200122
  Serious: Yes (Other)
  Sender: FDA-Public Use
  Company Number: CN-HQ SPECIALTY-CN-2019INT000273

PATIENT

DRUGS (3)
  1. CISPLATIN. [Suspect]
     Active Substance: CISPLATIN
     Indication: NASOPHARYNGEAL CANCER
     Dosage: 20-25 MG/M2, PER DAYS ON DAYS 1-3 EVERY 3 WEEKS
     Route: 042
  2. FLUOROURACIL. [Suspect]
     Active Substance: FLUOROURACIL
     Indication: NASOPHARYNGEAL CANCER
     Dosage: 600 MG/M2, PER DAY AS A CONTINUOUS 120 HOUR INFUSION EVERY 3 WEEKS
     Route: 042
  3. DOCETAXEL. [Suspect]
     Active Substance: DOCETAXEL
     Indication: NASOPHARYNGEAL CANCER
     Dosage: 160 MG/M2, ON DAY 1, EVERY 3 WEEKS
     Route: 042

REACTIONS (1)
  - Mucosal inflammation [Unknown]
